FAERS Safety Report 5631597-1 (Version None)
Quarter: 2008Q1

REPORT INFORMATION
  Report Type: 
  Country: None (occurrence: None)
  Receive Date: 20080215
  Receipt Date: 20080207
  Transmission Date: 20080703
  Serious: Yes (Death)
  Sender: FDA-Public Use
  Company Number: MEDI-0006533

PATIENT
  Age: 5 Month
  Sex: Male

DRUGS (3)
  1. SYNAGIS [Suspect]
     Dates: start: 20071001, end: 20080110
  2. SYNAGIS [Suspect]
     Dates: start: 20071001
  3. AMOXICILLIN [Concomitant]

REACTIONS (1)
  - DEATH [None]
